FAERS Safety Report 5225476-1 (Version None)
Quarter: 2007Q1

REPORT INFORMATION
  Report Type: 
  Country: None (occurrence: None)
  Receive Date: 20061201
  Receipt Date: 20060821
  Transmission Date: 20070707
  Serious: No
  Sender: FDA-Public Use
  Company Number: US200608005029

PATIENT
  Age: 38 Year
  Sex: Female

DRUGS (4)
  1. CYMBALTA [Suspect]
     Indication: BULIMIA NERVOSA
     Dosage: SEE IMAGE
     Dates: start: 20051101, end: 20060701
  2. CYMBALTA [Suspect]
     Indication: BULIMIA NERVOSA
     Dosage: SEE IMAGE
     Dates: start: 20060101
  3. CYMBALTA [Suspect]
     Indication: BULIMIA NERVOSA
     Dosage: SEE IMAGE
     Dates: start: 20060701
  4. WELLBUTRIN [Concomitant]

REACTIONS (5)
  - ARTHRALGIA [None]
  - CHEST PAIN [None]
  - DIZZINESS [None]
  - FEELING DRUNK [None]
  - SEXUAL DYSFUNCTION [None]
